FAERS Safety Report 7826153-0 (Version None)
Quarter: 2011Q4

REPORT INFORMATION
  Report Type: 
  Country: None (occurrence: None)
  Receive Date: 20111019
  Receipt Date: 20111011
  Transmission Date: 20120403
  Serious: Yes (Other)
  Sender: FDA-Public Use
  Company Number: GB-BRISTOL-MYERS SQUIBB COMPANY-16170169

PATIENT
  Age: 57 Year
  Sex: Male

DRUGS (3)
  1. CISPLATIN [Suspect]
     Indication: TONSIL CANCER
     Dates: start: 20110401, end: 20110801
  2. ERBITUX [Suspect]
     Indication: TONSIL CANCER
     Dates: start: 20110401
  3. FLUOROURACIL [Suspect]
     Indication: TONSIL CANCER
     Dates: start: 20110401, end: 20110801

REACTIONS (4)
  - NEUTROPENIA [None]
  - RENAL FAILURE [None]
  - NEUROPATHY PERIPHERAL [None]
  - TINNITUS [None]
